FAERS Safety Report 7747557-0 (Version None)
Quarter: 2011Q3

REPORT INFORMATION
  Report Type: 
  Country: None (occurrence: None)
  Receive Date: 20110913
  Receipt Date: 20110908
  Transmission Date: 20111222
  Serious: Yes (Other)
  Sender: FDA-Public Use
  Company Number: BR-ABBOTT-11P-020-0853057-00

PATIENT
  Sex: Female
  Weight: 68 kg

DRUGS (10)
  1. ABLOK PLUS [Concomitant]
     Indication: BLOOD PRESSURE MANAGEMENT
     Dosage: 50 MG + 12.5 MG, 1 IN 1 DAYS
     Route: 048
  2. PREDNISONE [Concomitant]
     Indication: ANALGESIC THERAPY
     Route: 048
  3. DIPROSPAN [Concomitant]
     Indication: ANALGESIC THERAPY
     Dosage: 5 MG + 2 MG, 1 IN 1 MONTH
     Route: 030
  4. SIMVASTATIN [Concomitant]
     Indication: BLOOD CHOLESTEROL
     Route: 048
  5. OMEPRAZOLE [Concomitant]
     Indication: PROPHYLAXIS
  6. TORLOS [Concomitant]
     Indication: BLOOD PRESSURE MANAGEMENT
     Route: 048
  7. OMEPRAZOLE [Concomitant]
     Indication: GASTRIC DISORDER
     Route: 048
  8. LEVOTHYROXINE SODIUM [Concomitant]
     Indication: HYPOTHYROIDISM
     Route: 048
  9. LEFLUNOMIDE [Concomitant]
     Indication: RHEUMATOID ARTHRITIS
     Dosage: 1 ON TUESDAY AND 1 ON THURSDAY
     Route: 048
  10. HUMIRA [Suspect]
     Indication: RHEUMATOID ARTHRITIS

REACTIONS (3)
  - FOOT DEFORMITY [None]
  - CATARACT [None]
  - OSTEOARTHRITIS [None]
